FAERS Safety Report 6681436-5 (Version None)
Quarter: 2010Q2

REPORT INFORMATION
  Report Type: 
  Country: None (occurrence: None)
  Receive Date: 20100414
  Receipt Date: 20091019
  Transmission Date: 20101027
  Serious: Yes (Hospitalization, Other)
  Sender: FDA-Public Use
  Company Number: US-ASTRAZENECA-2009SE20921

PATIENT
  Age: 82 Year
  Sex: Female
  Weight: 68.1 kg

DRUGS (4)
  1. LISINOPRIL AND HYDROCHLOROTHIAZIDE [Suspect]
     Indication: HYPERTENSION
     Dosage: 20 MG/12.5 MG
     Route: 048
     Dates: start: 20090611
  2. ASA404 VS PLACEBO (CODE NOT BROKEN) INJECTION [Suspect]
     Indication: NON-SMALL CELL LUNG CANCER
     Route: 042
     Dates: start: 20090615
  3. CARBOPLATIN [Concomitant]
     Indication: RETINAL VEIN OCCLUSION
  4. PACLITAXEL [Concomitant]
     Indication: RESTLESS LEGS SYNDROME

REACTIONS (3)
  - HYPONATRAEMIA [None]
  - INAPPROPRIATE ANTIDIURETIC HORMONE SECRETION [None]
  - POLYDIPSIA [None]
